FAERS Safety Report 6661238-6 (Version None)
Quarter: 2010Q1

REPORT INFORMATION
  Report Type: 
  Country: None (occurrence: None)
  Receive Date: 20100331
  Receipt Date: 20100326
  Transmission Date: 20100710
  Serious: Yes (Other)
  Sender: FDA-Public Use
  Company Number: PL-SANOFI-AVENTIS-2010SA017676

PATIENT
  Age: 54 Year
  Sex: Male
  Weight: 90 kg

DRUGS (7)
  1. DOCETAXEL [Suspect]
     Indication: PROSTATE CANCER
     Route: 041
     Dates: start: 20090709, end: 20090709
  2. DOCETAXEL [Suspect]
     Route: 041
     Dates: start: 20091222, end: 20091222
  3. ELIGARD [Suspect]
     Indication: PROSTATE CANCER
     Route: 058
     Dates: start: 20090709, end: 20090709
  4. ELIGARD [Suspect]
     Route: 058
     Dates: start: 20091222, end: 20091222
  5. CASODEX [Suspect]
     Indication: PROSTATE CANCER
     Dates: start: 20090709, end: 20090807
  6. BETA BLOCKING AGENTS [Concomitant]
  7. ACE INHIBITOR NOS [Concomitant]

REACTIONS (1)
  - NEUTROPENIA [None]
